FAERS Safety Report 4277940-X (Version None)
Quarter: 2004Q1

REPORT INFORMATION
  Report Type: 
  Country: None (occurrence: None)
  Receive Date: 20040121
  Receipt Date: 20040105
  Transmission Date: 20041129
  Serious: Yes (Hospitalization)
  Sender: FDA-Public Use
  Company Number: B0318941A

PATIENT
  Age: 62 Year
  Sex: Female
  Weight: 53.8873 kg

DRUGS (4)
  1. TEMOVATE [Suspect]
     Indication: PSORIASIS
     Dosage: TOPICAL
     Route: 061
  2. CELESTAMINE TAB [Suspect]
     Indication: URTICARIA
     Dosage: ORAL
     Route: 048
  3. SALICYLIC ACID + SOFT PARAF [Concomitant]
  4. BETAMEHTASONE DIPROPION [Concomitant]

REACTIONS (6)
  - ADRENAL INSUFFICIENCY [None]
  - AGITATION [None]
  - DELIRIUM [None]
  - DIABETES MELLITUS INSULIN-DEPENDENT [None]
  - GAMMA-GLUTAMYLTRANSFERASE INCREASED [None]
  - URTICARIA [None]
